FAERS Safety Report 6945781-8 (Version None)
Quarter: 2010Q3

REPORT INFORMATION
  Report Type: 
  Country: None (occurrence: None)
  Receive Date: 20100827
  Receipt Date: 20100818
  Transmission Date: 20110219
  Serious: Yes (Other)
  Sender: FDA-Public Use
  Company Number: B0670400A

PATIENT
  Sex: Male

DRUGS (2)
  1. CEPAZINE [Suspect]
     Indication: PRODUCT USED FOR UNKNOWN INDICATION
     Dosage: 1UNIT SINGLE DOSE
     Route: 048
  2. FENOFIBRATE [Concomitant]
     Route: 048

REACTIONS (11)
  - ANAPHYLACTIC REACTION [None]
  - DYSPHONIA [None]
  - ERYTHEMA [None]
  - FACE OEDEMA [None]
  - FORMICATION [None]
  - HYPERSENSITIVITY [None]
  - HYPOTENSION [None]
  - LOSS OF CONSCIOUSNESS [None]
  - MALAISE [None]
  - PRURITUS [None]
  - SKIN TEST POSITIVE [None]
